FAERS Safety Report 5132669-0 (Version None)
Quarter: 2006Q4

REPORT INFORMATION
  Report Type: 
  Country: None (occurrence: None)
  Receive Date: 20061023
  Receipt Date: 20060712
  Transmission Date: 20070319
  Serious: Yes (Hospitalization)
  Sender: FDA-Public Use
  Company Number: PHBS2006JP10430

PATIENT
  Age: 71 Year
  Sex: Male

DRUGS (1)
  1. NEORAL [Suspect]
     Indication: PSORIASIS
     Dosage: 100 MG/D
     Route: 048
     Dates: start: 20010701, end: 20060607

REACTIONS (2)
  - CEREBELLAR ATAXIA [None]
  - GAIT DISTURBANCE [None]
